FAERS Safety Report 9722706 (Version 1)
Quarter: 2013Q4

REPORT INFORMATION
  Report Type: Spontaneous
  Country: US (occurrence: None)
  Receive Date: 20131127
  Receipt Date: 20131127
  Transmission Date: 20140711
  Serious: Yes (Hospitalization)
  Sender: FDA-Public Use
  Company Number: None

PATIENT
  Age: 9 Year
  Sex: Female
  Weight: 37.3 kg

DRUGS (4)
  1. CYTARABINE [Suspect]
  2. DEXAMETHASONE [Suspect]
  3. PEG-L-ASPARAGINASE (PEGASPARGASE, ONCOSPAR) [Suspect]
  4. VINCRISTINE SULFATE [Suspect]

REACTIONS (5)
  - Somnolence [None]
  - Headache [None]
  - Transaminases increased [None]
  - Myoclonic epilepsy [None]
  - Loss of consciousness [None]
